FAERS Safety Report 9733594 (Version 5)
Quarter: 2014Q1

REPORT INFORMATION
  Report Type: Report from Study
  Country: CZ (occurrence: CZ)
  Receive Date: 20131205
  Receipt Date: 20140310
  Transmission Date: 20141002
  Serious: Yes (Hospitalization)
  Sender: FDA-Public Use
  Company Number: CZ-GLAXOSMITHKLINE-B0939964B

PATIENT
  Age: 66 Year
  Sex: Male
  Weight: 80 kg

DRUGS (22)
  1. RINGERFUNDIN [Concomitant]
     Route: 042
     Dates: start: 20131128, end: 20131201
  2. DEXAMED [Concomitant]
     Route: 042
     Dates: start: 20131128, end: 20131129
  3. FORTECORTIN [Concomitant]
     Route: 048
     Dates: start: 20131130
  4. FURON [Concomitant]
     Dosage: 40MG PER DAY
     Route: 048
     Dates: start: 20131203, end: 20131210
  5. HYPNOGEN [Concomitant]
     Dosage: 10MG PER DAY
     Route: 048
     Dates: start: 20131201
  6. NOVALGIN [Concomitant]
     Route: 042
     Dates: start: 20131130
  7. ALGIFEN [Concomitant]
     Dosage: 20DROP THREE TIMES PER DAY
     Route: 048
     Dates: start: 20131209, end: 20131211
  8. DABRAFENIB [Suspect]
     Indication: METASTATIC MALIGNANT MELANOMA
     Route: 048
     Dates: start: 20131011, end: 20131127
  9. TRAMETINIB [Suspect]
     Indication: METASTATIC MALIGNANT MELANOMA
     Route: 048
     Dates: start: 20131011, end: 20131127
  10. HYDROCHLOROTHIAZIDE [Concomitant]
     Indication: HYPERTENSION
     Dosage: 25MG PER DAY
     Route: 048
     Dates: start: 201204
  11. RAMIPRIL [Concomitant]
     Indication: HYPERTENSION
     Dosage: 5MG TWICE PER DAY
     Route: 048
     Dates: start: 201308
  12. ZOLPIDEM [Concomitant]
     Indication: INSOMNIA
     Dosage: 10MG PER DAY
     Route: 048
  13. ATORIS [Concomitant]
     Indication: HYPERLIPIDAEMIA
     Dosage: 20MG PER DAY
     Route: 048
     Dates: start: 20130220
  14. SOLIFENACIN SUCCINATE [Concomitant]
     Indication: HYPERTONIC BLADDER
     Dosage: 5MG TWICE PER DAY
     Dates: start: 20130906
  15. ORTANOL [Concomitant]
     Indication: ADRENOCORTICAL STEROID THERAPY
     Dosage: 20MG PER DAY
     Route: 048
     Dates: start: 201308
  16. KEPPRA [Concomitant]
     Indication: EPILEPSY
     Dosage: 500MG TWICE PER DAY
     Route: 048
     Dates: start: 20130919
  17. TENAXUM [Concomitant]
     Indication: HYPERTENSION
     Dosage: 1MG PER DAY
     Route: 048
     Dates: start: 20131030
  18. PIRAMIL [Concomitant]
     Route: 048
     Dates: start: 20131129
  19. LEVETIRACETAM [Concomitant]
     Dosage: 500MG TWICE PER DAY
     Route: 048
     Dates: start: 20131129, end: 20131213
  20. VESICARE [Concomitant]
     Dosage: 5MG TWICE PER DAY
     Route: 048
     Dates: start: 20131129, end: 20131213
  21. ORTANOL [Concomitant]
     Dosage: 20MG PER DAY
     Route: 048
     Dates: start: 20131128, end: 20131213
  22. TENAXUM [Concomitant]
     Dosage: 1MG PER DAY
     Route: 048
     Dates: start: 20131129, end: 20131201

REACTIONS (8)
  - Chills [Recovered/Resolved]
  - Electrocardiogram QT prolonged [Recovered/Resolved]
  - Dehydration [Recovered/Resolved]
  - Vomiting [Recovered/Resolved]
  - Electrocardiogram QT prolonged [Recovered/Resolved]
  - Nausea [Recovered/Resolved]
  - Urinary retention [Recovered/Resolved]
  - Confusional state [Recovered/Resolved]
